FAERS Safety Report 7391101-7 (Version None)
Quarter: 2011Q2

REPORT INFORMATION
  Report Type: 
  Country: None (occurrence: None)
  Receive Date: 20110404
  Receipt Date: 20110309
  Transmission Date: 20111010
  Serious: Yes (Hospitalization, Other)
  Sender: FDA-Public Use
  Company Number: JP-SP-2011-00519

PATIENT
  Sex: Male

DRUGS (5)
  1. IMMUCYST [Suspect]
     Indication: BLADDER CANCER
     Route: 043
     Dates: start: 20101111, end: 20101222
  2. WARFARIN [Concomitant]
     Indication: ATRIAL FIBRILLATION
     Route: 048
  3. AMLODIN [Concomitant]
     Indication: HYPERTENSION
     Route: 048
  4. DIAZEPAM [Concomitant]
     Indication: ANXIETY
     Route: 048
  5. HERBESSER [Concomitant]
     Indication: HYPERTENSION
     Route: 048

REACTIONS (5)
  - COUGH [None]
  - DISSEMINATED TUBERCULOSIS [None]
  - GRANULOMA [None]
  - BLADDER CANCER RECURRENT [None]
  - PYREXIA [None]
